FAERS Safety Report 25934490 (Version 1)
Quarter: 2025Q4

REPORT INFORMATION
  Report Type: Spontaneous
  Country: CN (occurrence: CN)
  Receive Date: 20251017
  Receipt Date: 20251017
  Transmission Date: 20260117
  Serious: Yes (Hospitalization)
  Sender: NOVARTIS
  Company Number: CN-002147023-NVSC2025CN159529

PATIENT
  Age: 39 Year
  Sex: Female

DRUGS (1)
  1. FABHALTA [Suspect]
     Active Substance: IPTACOPAN HYDROCHLORIDE
     Indication: Paroxysmal nocturnal haemoglobinuria
     Dosage: UNK, BID
     Route: 048
     Dates: start: 202507

REACTIONS (9)
  - Bone pain [Unknown]
  - Retching [Unknown]
  - Vomiting [Recovered/Resolved]
  - Headache [Unknown]
  - Asthenia [Unknown]
  - Blood calcium increased [Unknown]
  - Blood parathyroid hormone decreased [Unknown]
  - Back pain [Not Recovered/Not Resolved]
  - Myalgia [Recovering/Resolving]

NARRATIVE: CASE EVENT DATE: 20250801
